FAERS Safety Report 7103545-9 (Version None)
Quarter: 2010Q4

REPORT INFORMATION
  Report Type: 
  Country: None (occurrence: None)
  Receive Date: 20101115
  Receipt Date: 20101110
  Transmission Date: 20110411
  Serious: Yes (Hospitalization)
  Sender: FDA-Public Use
  Company Number: IT-BAYER-201046141GPV

PATIENT
  Age: 76 Year
  Sex: Male

DRUGS (7)
  1. ASPIRIN [Suspect]
     Indication: PLATELET AGGREGATION INHIBITION
     Dosage: TOTAL DAILY DOSE: 100 MG
     Route: 048
     Dates: start: 20080801, end: 20100817
  2. SPIRIVA [Concomitant]
     Route: 055
  3. FORMOTEROLO EG [Concomitant]
     Route: 055
  4. LANOXIN [Concomitant]
     Route: 048
  5. LASITONE [Concomitant]
     Route: 048
  6. SUCRALFIN [Concomitant]
     Route: 048
  7. OMEPRAZOLO ALMUS [Concomitant]
     Route: 048

REACTIONS (5)
  - ASTHENIA [None]
  - DECREASED APPETITE [None]
  - DUODENAL ULCER [None]
  - MELAENA [None]
  - UPPER GASTROINTESTINAL HAEMORRHAGE [None]
